FAERS Safety Report 6962775 (Version 3)
Quarter: 2013Q2

REPORT INFORMATION
  Report Type: Spontaneous
  Country: US (occurrence: CA)
  Receive Date: 20090407
  Receipt Date: 20130510
  Transmission Date: 20140414
  Serious: Yes (Hospitalization)
  Sender: FDA-Public Use
  Company Number: CA-B.I. PHARMACEUTICALS,INC./RIDGEFIELD-2009-BP-04255BP

PATIENT
  Sex: Female
  Weight: 69.85 kg

DRUGS (1)
  1. MIRAPEX [Suspect]
     Indication: PARKINSON^S DISEASE
     Route: 048
     Dates: start: 20010220

REACTIONS (8)
  - Suicide attempt [Unknown]
  - Pathological gambling [Recovered/Resolved]
  - Hyperphagia [Recovered/Resolved]
  - Weight increased [Unknown]
  - Hypersexuality [Recovered/Resolved]
  - Hallucination, visual [Recovered/Resolved]
  - Personality change [Recovered/Resolved]
  - Somnolence [Unknown]
